FAERS Safety Report 5642879-1 (Version None)
Quarter: 2008Q1

REPORT INFORMATION
  Report Type: 
  Country: None (occurrence: None)
  Receive Date: 20080228
  Receipt Date: 20080221
  Transmission Date: 20080703
  Serious: Yes (Other)
  Sender: FDA-Public Use
  Company Number: PHNU2008DE00633

PATIENT
  Age: 52 Year
  Sex: Male
  Weight: 102 kg

DRUGS (6)
  1. ZOCOR [Concomitant]
     Dosage: 10 MG, QD
     Route: 048
  2. VIANI [Concomitant]
     Dosage: 1 DF, BID
     Route: 048
  3. IMMUNOSPORIN [Suspect]
     Indication: DERMATITIS ATOPIC
     Dosage: 300MG/DAY
     Route: 048
     Dates: start: 20071214, end: 20080128
  4. IMMUNOSPORIN [Suspect]
     Dosage: 100 MG, BID
     Route: 048
     Dates: start: 20080129
  5. RAMIPRIL [Concomitant]
     Dosage: 0.5 DF, BID
     Route: 048
  6. VERAPAMIL [Concomitant]
     Dosage: 1 DF, BID
     Route: 048

REACTIONS (13)
  - BLOOD GLUCOSE FLUCTUATION [None]
  - BLOOD PRESSURE FLUCTUATION [None]
  - COUGH [None]
  - DIZZINESS [None]
  - FALL [None]
  - FATIGUE [None]
  - HEADACHE [None]
  - HYPERGLYCAEMIA [None]
  - HYPOTONIA [None]
  - MYALGIA [None]
  - PAIN IN EXTREMITY [None]
  - RENAL PAIN [None]
  - SYNCOPE [None]
